FAERS Safety Report 5120570-8 (Version None)
Quarter: 2006Q4

REPORT INFORMATION
  Report Type: 
  Country: None (occurrence: None)
  Receive Date: 20061004
  Receipt Date: 20060926
  Transmission Date: 20070319
  Serious: Yes (Hospitalization)
  Sender: FDA-Public Use
  Company Number: JP-ROCHE-465253

PATIENT
  Age: 70 Year
  Sex: Female

DRUGS (3)
  1. XELODA [Suspect]
     Indication: BREAST CANCER METASTATIC
     Route: 048
     Dates: start: 20060415, end: 20060902
  2. TAXOL [Concomitant]
     Route: 041
  3. MULTI-VITAMINS [Concomitant]
     Dosage: DRUG: VITAMIN B6 AND PREPARATIONS

REACTIONS (1)
  - CONVULSION [None]
